FAERS Safety Report 4558792-7 (Version None)
Quarter: 2005Q1

REPORT INFORMATION
  Report Type: 
  Country: None (occurrence: None)
  Receive Date: 20050121
  Receipt Date: 20041124
  Transmission Date: 20050727
  Serious: Yes (Death, Life-Threatening)
  Sender: FDA-Public Use
  Company Number: JP-GLAXOSMITHKLINE-B0358381A

PATIENT
  Age: 65 Year
  Sex: Male
  Weight: 54.4 kg

DRUGS (10)
  1. ZEFIX [Suspect]
     Indication: HEPATIC CIRRHOSIS
     Dosage: 100MG PER DAY
     Route: 048
     Dates: start: 20040813, end: 20041115
  2. ZEFIX [Suspect]
     Dosage: 100MG PER DAY
     Route: 048
     Dates: start: 20041117, end: 20041119
  3. ALDACTONE A [Concomitant]
     Indication: OEDEMA
     Dosage: 1TAB PER DAY
     Route: 048
     Dates: end: 20040701
  4. ADALAT [Concomitant]
     Indication: HYPERTENSION
     Dosage: 40MG PER DAY
     Route: 048
     Dates: end: 20041118
  5. CYANOCOBALAMIN [Concomitant]
     Indication: NEUROPATHY PERIPHERAL
     Dosage: 3TAB PER DAY
     Route: 048
     Dates: end: 20041118
  6. GLAKAY [Concomitant]
     Indication: VITAMIN K DEFICIENCY
     Dosage: 3CAP PER DAY
     Route: 048
     Dates: end: 20041118
  7. LASIX [Concomitant]
     Indication: OEDEMA
     Dosage: 2TAB PER DAY
     Route: 048
     Dates: end: 20041118
  8. HALCION [Concomitant]
     Indication: INSOMNIA
     Dosage: 1TAB PER DAY
     Route: 048
     Dates: end: 20041118
  9. LACTULOSE [Concomitant]
     Indication: INSOMNIA
     Dosage: 3UNIT PER DAY
     Route: 048
     Dates: end: 20041118
  10. TRIAMTEREN [Concomitant]
     Indication: OEDEMA
     Dosage: 1CAP PER DAY
     Route: 048
     Dates: start: 20040702, end: 20041118

REACTIONS (11)
  - ASCITES [None]
  - BILIRUBIN CONJUGATED INCREASED [None]
  - BLOOD BILIRUBIN INCREASED [None]
  - BLOOD CREATININE INCREASED [None]
  - HEPATIC ENCEPHALOPATHY [None]
  - HEPATIC FAILURE [None]
  - JAUNDICE [None]
  - OEDEMA [None]
  - OLIGURIA [None]
  - RENAL DISORDER [None]
  - WHITE BLOOD CELL COUNT INCREASED [None]
